FAERS Safety Report 5240130-8 (Version None)
Quarter: 2007Q1

REPORT INFORMATION
  Report Type: 
  Country: None (occurrence: None)
  Receive Date: 20070216
  Receipt Date: 20070206
  Transmission Date: 20070707
  Serious: Yes (Other)
  Sender: FDA-Public Use
  Company Number: US-PFIZER INC-2007011058

PATIENT
  Age: 72 Year
  Sex: Male

DRUGS (6)
  1. LYRICA [Suspect]
     Indication: NEUROPATHY PERIPHERAL
     Dates: start: 20060906, end: 20060916
  2. LEXAPRO [Concomitant]
     Route: 048
  3. TOPROL-XL [Concomitant]
     Route: 048
  4. VYTORIN [Concomitant]
     Route: 048
  5. WARFARIN SODIUM [Concomitant]
     Route: 048
  6. NASONEX [Concomitant]
     Route: 045

REACTIONS (5)
  - BRAIN NATRIURETIC PEPTIDE INCREASED [None]
  - CARDIAC FAILURE [None]
  - DIASTOLIC DYSFUNCTION [None]
  - DYSPNOEA [None]
  - PULMONARY CONGESTION [None]
